FAERS Safety Report 15428336 (Version 1)
Quarter: 2018Q3

REPORT INFORMATION
  Report Type: Spontaneous
  Country: NL (occurrence: NL)
  Receive Date: 20180926
  Receipt Date: 20180926
  Transmission Date: 20181010
  Serious: Yes (Hospitalization, Other)
  Sender: FDA-Public Use
  Company Number: NL-009507513-1809NLD008567

PATIENT
  Age: 60 Year
  Sex: Female

DRUGS (7)
  1. FOLIC ACID. [Concomitant]
     Active Substance: FOLIC ACID
     Dosage: LX PER WEEK  1 TABLET ON MONDAY
     Route: 048
  2. LEVOTHYROXINE SODIUM. [Concomitant]
     Active Substance: LEVOTHYROXINE SODIUM
     Dosage: 1 TABLET,  PER DAY
     Route: 048
  3. CARBIDOPA (+) LEVODOPA [Concomitant]
     Active Substance: CARBIDOPA\LEVODOPA
     Indication: PARKINSON^S DISEASE
     Dosage: UNK
     Route: 048
     Dates: start: 20180316, end: 20180829
  4. CARBIDOPA (+) LEVODOPA [Concomitant]
     Active Substance: CARBIDOPA\LEVODOPA
     Indication: PARKINSON^S DISEASE
     Dosage: 6X PER DAY 1 TABLET
     Route: 048
     Dates: start: 20180907
  5. SINEMET [Suspect]
     Active Substance: CARBIDOPA\LEVODOPA
     Indication: PARKINSON^S DISEASE
     Dosage: 2 TABLETS 3 TIMES PER DAY
     Route: 048
     Dates: start: 20180829, end: 20180907
  6. ENTACAPONE. [Concomitant]
     Active Substance: ENTACAPONE
     Dosage: 1 DF,6X PER DAY
     Route: 048
     Dates: start: 20180411
  7. ROPINIROLE. [Concomitant]
     Active Substance: ROPINIROLE
     Dosage: LX PER DAY 2 TABLETS
     Route: 048

REACTIONS (6)
  - Depressed mood [Unknown]
  - Parkinson^s disease [Unknown]
  - Condition aggravated [Unknown]
  - Tremor [Recovered/Resolved]
  - Adverse event [Unknown]
  - Vibratory sense increased [Recovered/Resolved]

NARRATIVE: CASE EVENT DATE: 2018
